FAERS Safety Report 10644068 (Version 1)
Quarter: 2014Q4

REPORT INFORMATION
  Report Type: Report from Study
  Country: US (occurrence: US)
  Receive Date: 20141210
  Receipt Date: 20141210
  Transmission Date: 20150529
  Serious: Yes (Hospitalization)
  Sender: FDA-Public Use
  Company Number: US-SA-2014SA168570

PATIENT
  Sex: Male

DRUGS (1)
  1. LANTUS [Suspect]
     Active Substance: INSULIN GLARGINE
     Indication: DIABETES MELLITUS
     Dosage: THERAPY START DATE: 2006-2007, 25 UNITS IN THE MORNING AND 25 UNITS IN THE EVENING DOSE:25 UNIT(S)
     Route: 065

REACTIONS (4)
  - Burning sensation [Unknown]
  - Off label use [Unknown]
  - Pain [Unknown]
  - Localised infection [Unknown]

NARRATIVE: CASE EVENT DATE: 2014
